FAERS Safety Report 12423180 (Version 1)
Quarter: 2016Q2

REPORT INFORMATION
  Report Type: Spontaneous
  Country: US (occurrence: None)
  Receive Date: 20160531
  Receipt Date: 20160531
  Transmission Date: 20160815
  Serious: Yes (Hospitalization, Other)
  Sender: FDA-Public Use
  Company Number: None

PATIENT
  Age: 61 Year
  Sex: Female
  Weight: 92.99 kg

DRUGS (6)
  1. IBUPROFEN. [Concomitant]
     Active Substance: IBUPROFEN
  2. TYLENOL [Concomitant]
     Active Substance: ACETAMINOPHEN
  3. LISINOPRIL-10 MG-PINK [Suspect]
     Active Substance: LISINOPRIL
     Indication: HYPERTENSION
     Dosage: 1 PILL DAILY BY MOUTH
     Route: 048
     Dates: end: 20160222
  4. MIRALAX [Suspect]
     Active Substance: POLYETHYLENE GLYCOL 3350
  5. FORADIL [Concomitant]
     Active Substance: FORMOTEROL FUMARATE
  6. MULTI-VITAMIN [Concomitant]
     Active Substance: .ALPHA.-TOCOPHEROL ACETATE, DL-\ASCORBIC ACID\CYANOCOBALAMIN\FLUORIDE ION\FOLIC ACID\NIACIN\PYRIDOXINE\RIBOFLAVIN\THIAMINE\VITAMIN A\VITAMIN D

REACTIONS (11)
  - Lip swelling [None]
  - Eye swelling [None]
  - Swollen tongue [None]
  - Urticaria [None]
  - Throat irritation [None]
  - Dyspnoea [None]
  - Pruritus [None]
  - Headache [None]
  - Discomfort [None]
  - Peripheral swelling [None]
  - Abdominal distension [None]

NARRATIVE: CASE EVENT DATE: 20151112
